FAERS Safety Report 19587505 (Version 13)
Quarter: 2024Q3

REPORT INFORMATION
  Report Type: Report from Study
  Country: JP (occurrence: JP)
  Receive Date: 20210721
  Receipt Date: 20240917
  Transmission Date: 20241016
  Serious: Yes (Life-Threatening, Hospitalization, Other)
  Sender: BRISTOL MYERS SQUIBB
  Company Number: JP-BRISTOL-MYERS SQUIBB COMPANY-BMS-2021-016251

PATIENT
  Age: 53 Year
  Sex: Male
  Weight: 89.1 kg

DRUGS (45)
  1. YERVOY [Suspect]
     Active Substance: IPILIMUMAB
     Indication: Metastatic renal cell carcinoma
     Route: 041
     Dates: start: 20210120, end: 20210120
  2. YERVOY [Suspect]
     Active Substance: IPILIMUMAB
     Route: 041
     Dates: start: 20210322, end: 20210412
  3. YERVOY [Suspect]
     Active Substance: IPILIMUMAB
     Route: 041
     Dates: start: 20210412, end: 20210412
  4. OPDIVO [Suspect]
     Active Substance: NIVOLUMAB
     Indication: Metastatic renal cell carcinoma
     Route: 041
     Dates: start: 20210120, end: 20210120
  5. OPDIVO [Suspect]
     Active Substance: NIVOLUMAB
     Route: 041
     Dates: start: 20210322, end: 20210322
  6. OPDIVO [Suspect]
     Active Substance: NIVOLUMAB
     Route: 041
     Dates: start: 20210412, end: 20210412
  7. LOPERAMIDE HYDROCHLORIDE [Suspect]
     Active Substance: LOPERAMIDE HYDROCHLORIDE
     Indication: Colitis
     Route: 048
     Dates: start: 20210213, end: 20210303
  8. CABOMETYX [Suspect]
     Active Substance: CABOZANTINIB S-MALATE
     Indication: Metastatic renal cell carcinoma
     Route: 048
     Dates: start: 20210502, end: 20210514
  9. CABOMETYX [Suspect]
     Active Substance: CABOZANTINIB S-MALATE
     Indication: Malignant neoplasm progression
     Route: 048
     Dates: start: 20210607, end: 20210701
  10. CABOMETYX [Suspect]
     Active Substance: CABOZANTINIB S-MALATE
     Route: 048
     Dates: start: 20210708
  11. PREDNISOLONE [Suspect]
     Active Substance: PREDNISOLONE
     Indication: Colitis
     Route: 048
     Dates: start: 20210222, end: 20210224
  12. PREDNISOLONE [Suspect]
     Active Substance: PREDNISOLONE
     Route: 048
     Dates: start: 20210225, end: 20210308
  13. PREDNISOLONE [Suspect]
     Active Substance: PREDNISOLONE
     Route: 048
     Dates: start: 20210309, end: 20210315
  14. PREDNISOLONE [Suspect]
     Active Substance: PREDNISOLONE
     Route: 048
     Dates: start: 20210316, end: 20210318
  15. PREDNISOLONE [Suspect]
     Active Substance: PREDNISOLONE
     Route: 048
     Dates: start: 20210319, end: 20210321
  16. PREDNISOLONE [Suspect]
     Active Substance: PREDNISOLONE
     Route: 048
     Dates: start: 20210322, end: 20210416
  17. PREDNISOLONE [Suspect]
     Active Substance: PREDNISOLONE
     Route: 048
     Dates: start: 20210426, end: 20210429
  18. PREDNISOLONE [Suspect]
     Active Substance: PREDNISOLONE
     Route: 048
     Dates: start: 20210430, end: 20210505
  19. PREDNISOLONE [Suspect]
     Active Substance: PREDNISOLONE
     Route: 048
     Dates: start: 20210506, end: 20210511
  20. PREDNISOLONE [Suspect]
     Active Substance: PREDNISOLONE
     Route: 048
     Dates: start: 20210512, end: 20210530
  21. PREDNISOLONE [Suspect]
     Active Substance: PREDNISOLONE
     Route: 048
     Dates: start: 20210531, end: 20210606
  22. PREDNISOLONE [Suspect]
     Active Substance: PREDNISOLONE
     Route: 048
     Dates: start: 20210607, end: 20210615
  23. PREDNISOLONE [Suspect]
     Active Substance: PREDNISOLONE
     Route: 048
     Dates: start: 20210616, end: 20210622
  24. PREDNISOLONE [Suspect]
     Active Substance: PREDNISOLONE
     Route: 048
     Dates: start: 20210623, end: 20210629
  25. PREDNISOLONE [Suspect]
     Active Substance: PREDNISOLONE
     Route: 048
     Dates: start: 20210630, end: 20210725
  26. PREDNISOLONE [Suspect]
     Active Substance: PREDNISOLONE
     Route: 041
     Dates: start: 20210213, end: 20210215
  27. PREDNISOLONE [Suspect]
     Active Substance: PREDNISOLONE
     Route: 041
     Dates: start: 20210216, end: 20210218
  28. PREDNISOLONE [Suspect]
     Active Substance: PREDNISOLONE
     Route: 041
     Dates: start: 20210219, end: 20210221
  29. SODIUM FERROUS CITRATE [Suspect]
     Active Substance: SODIUM FERROUS CITRATE
     Indication: Haemoglobin decreased
     Route: 048
     Dates: start: 20210217, end: 20210224
  30. SODIUM FERROUS CITRATE [Suspect]
     Active Substance: SODIUM FERROUS CITRATE
     Indication: Haematuria
     Route: 048
     Dates: end: 20210303
  31. SODIUM FERROUS CITRATE [Suspect]
     Active Substance: SODIUM FERROUS CITRATE
     Indication: Haemoglobin decreased
     Route: 048
     Dates: start: 20210303
  32. BISOPROLOL FUMARATE [Suspect]
     Active Substance: BISOPROLOL FUMARATE
     Indication: Hypertension
     Route: 048
     Dates: end: 20210303
  33. BISOPROLOL FUMARATE [Suspect]
     Active Substance: BISOPROLOL FUMARATE
     Route: 048
     Dates: start: 20210308
  34. BISOPROLOL FUMARATE [Suspect]
     Active Substance: BISOPROLOL FUMARATE
     Route: 048
     Dates: start: 20201228, end: 20210303
  35. BENZBROMARONE [Suspect]
     Active Substance: BENZBROMARONE
     Indication: Hyperuricaemia
     Route: 048
  36. BENZBROMARONE [Suspect]
     Active Substance: BENZBROMARONE
     Route: 048
     Dates: start: 20201228, end: 20210303
  37. BENZBROMARONE [Suspect]
     Active Substance: BENZBROMARONE
     Route: 048
  38. BEZAFIBRATE [Suspect]
     Active Substance: BEZAFIBRATE
     Indication: Hyperlipidaemia
     Route: 048
  39. BEZAFIBRATE [Suspect]
     Active Substance: BEZAFIBRATE
     Route: 048
     Dates: start: 20201228, end: 20210303
  40. BEZAFIBRATE [Suspect]
     Active Substance: BEZAFIBRATE
     Route: 048
  41. EDOXABAN TOSYLATE [Concomitant]
     Active Substance: EDOXABAN TOSYLATE
     Indication: Product used for unknown indication
  42. EDOXABAN TOSYLATE [Concomitant]
     Active Substance: EDOXABAN TOSYLATE
     Dates: start: 20210214, end: 20210215
  43. EDOXABAN TOSYLATE [Concomitant]
     Active Substance: EDOXABAN TOSYLATE
     Dates: end: 20210214
  44. EDOXABAN TOSYLATE [Concomitant]
     Active Substance: EDOXABAN TOSYLATE
  45. EDOXABAN TOSYLATE [Concomitant]
     Active Substance: EDOXABAN TOSYLATE

REACTIONS (14)
  - Colitis [Recovered/Resolved]
  - Haematuria [Recovered/Resolved]
  - Malignant neoplasm progression [Recovering/Resolving]
  - White blood cell count decreased [Recovered/Resolved]
  - Febrile neutropenia [Recovered/Resolved]
  - Hepatic function abnormal [Recovered/Resolved]
  - Shock haemorrhagic [Unknown]
  - Disseminated intravascular coagulation [Unknown]
  - Hyperkalaemia [Unknown]
  - Liver disorder [Recovering/Resolving]
  - Adjusted calcium decreased [Unknown]
  - Oedema peripheral [Recovering/Resolving]
  - Blood sodium decreased [Unknown]
  - Anaemia [Unknown]

NARRATIVE: CASE EVENT DATE: 20210127
